FAERS Safety Report 5130416-X (Version None)
Quarter: 2007Q1

REPORT INFORMATION
  Report Type: 
  Country: None (occurrence: None)
  Receive Date: 20061013
  Receipt Date: 20060928
  Transmission Date: 20070707
  Serious: Yes (Other)
  Sender: FDA-Public Use
  Company Number: US200609007306

PATIENT
  Age: 76 Year
  Sex: Female

DRUGS (2)
  1. FORTEO [Suspect]
     Indication: OSTEOPOROSIS
     Dates: start: 20060914
  2. FORTEO [Concomitant]

REACTIONS (2)
  - MYELODYSPLASTIC SYNDROME [None]
  - PHARMACEUTICAL PRODUCT COMPLAINT [None]
